FAERS Safety Report 21623200 (Version 1)
Quarter: 2022Q4

REPORT INFORMATION
  Report Type: Spontaneous
  Country: US (occurrence: None)
  Receive Date: 20221118
  Receipt Date: 20221118
  Transmission Date: 20230112
  Serious: Yes (Disabling)
  Sender: FDA-Public Use
  Company Number: None

PATIENT
  Age: 65 Year
  Sex: Female
  Weight: 80.74 kg

DRUGS (9)
  1. LEVOTHYROXINE [Suspect]
     Active Substance: LEVOTHYROXINE
     Indication: Autoimmune thyroiditis
     Dosage: FREQUENCY : DAILY;?
     Route: 048
  2. SNTHROID [Concomitant]
  3. VITAMINS [Concomitant]
     Active Substance: VITAMINS
  4. LOW DOSE ASPIRIN [Concomitant]
     Active Substance: ASPIRIN
  5. MAGNESIUM [Concomitant]
     Active Substance: MAGNESIUM
  6. FISH OIL [Concomitant]
     Active Substance: FISH OIL
  7. MELATONIN [Concomitant]
     Active Substance: MELATONIN
  8. OSTEO-BIFLEX [Concomitant]
  9. PROBIOTICS NOS [Concomitant]
     Active Substance: PROBIOTICS NOS

REACTIONS (16)
  - Muscle spasms [None]
  - Paraesthesia [None]
  - Pain in extremity [None]
  - Paraesthesia [None]
  - Balance disorder [None]
  - Visual impairment [None]
  - Feeling abnormal [None]
  - Fatigue [None]
  - Headache [None]
  - Eye pain [None]
  - Arthralgia [None]
  - Groin pain [None]
  - Body temperature abnormal [None]
  - Pain in jaw [None]
  - Tinnitus [None]
  - Pain in extremity [None]

NARRATIVE: CASE EVENT DATE: 20220401
